FAERS Safety Report 25938464 (Version 1)
Quarter: 2025Q4

REPORT INFORMATION
  Report Type: Spontaneous
  Country: US (occurrence: US)
  Receive Date: 20251019
  Receipt Date: 20251019
  Transmission Date: 20260118
  Serious: No
  Sender: GALDERMA
  Company Number: US-GALDERMA-US2025018412

PATIENT

DRUGS (5)
  1. NEMLUVIO [Suspect]
     Active Substance: NEMOLIZUMAB-ILTO
     Indication: Dermatitis atopic
     Dosage: UNK, LOADING DOSE, EVERY 4 WEEKS
     Route: 058
     Dates: start: 202508, end: 202508
  2. NEMLUVIO [Suspect]
     Active Substance: NEMOLIZUMAB-ILTO
     Dosage: UNK, MAINTENANCE DOSE, EVERY 4 WEEKS
     Route: 058
     Dates: start: 20250920, end: 20250920
  3. ELIQUIS [Concomitant]
     Active Substance: APIXABAN
     Indication: Blood disorder
     Dosage: UNK, 5 YEARS AGO
  4. ATORVASTATIN [Concomitant]
     Active Substance: ATORVASTATIN
     Indication: Cardiac disorder
     Dosage: UNK, 5 YEARS AGO
  5. AMLODIPINE [Concomitant]
     Active Substance: AMLODIPINE BESYLATE
     Indication: Hypertension
     Dosage: UNK, 5 YEARS AGO

REACTIONS (5)
  - Headache [Recovered/Resolved]
  - Rash [Not Recovered/Not Resolved]
  - Arthralgia [Not Recovered/Not Resolved]
  - Device leakage [Recovered/Resolved]
  - Incorrect dose administered [Recovered/Resolved]

NARRATIVE: CASE EVENT DATE: 20250101
